FAERS Safety Report 5112296-1 (Version None)
Quarter: 2006Q3

REPORT INFORMATION
  Report Type: 
  Country: None (occurrence: None)
  Receive Date: 20060922
  Receipt Date: 20060614
  Transmission Date: 20061208
  Serious: No
  Sender: FDA-Public Use
  Company Number: US-GLAXOSMITHKLINE-A0608930A

PATIENT
  Age: 30 Year
  Sex: Male

DRUGS (1)
  1. ABREVA [Suspect]
     Dates: start: 20060610, end: 20060612

REACTIONS (1)
  - DRUG INEFFECTIVE [None]
